FAERS Safety Report 11545762 (Version 1)
Quarter: 2015Q3

REPORT INFORMATION
  Report Type: Spontaneous
  Country: US (occurrence: US)
  Receive Date: 20150903
  Receipt Date: 20150903
  Transmission Date: 20151125
  Serious: No
  Sender: FDA-Public Use
  Company Number: US-ELI_LILLY_AND_COMPANY-US201111003194

PATIENT
  Age: 73 Year
  Sex: Female

DRUGS (3)
  1. HUMALOG MIX75/25 [Suspect]
     Active Substance: INSULIN LISPRO
     Indication: TYPE 2 DIABETES MELLITUS
     Dosage: 8 U, BID
     Dates: start: 20111024
  2. HUMALOG MIX75/25 [Suspect]
     Active Substance: INSULIN LISPRO
     Dosage: 9 U, EACH MORNING
     Dates: start: 20111031
  3. HUMALOG MIX75/25 [Suspect]
     Active Substance: INSULIN LISPRO
     Dosage: 6 U, EACH EVENING
     Dates: start: 20111031

REACTIONS (18)
  - Dysgeusia [Unknown]
  - Tongue discolouration [Unknown]
  - Malaise [Unknown]
  - Dry skin [Unknown]
  - Oral mucosal discolouration [Unknown]
  - Swelling face [Unknown]
  - Abdominal pain upper [Unknown]
  - Gingival pain [Unknown]
  - Throat irritation [Unknown]
  - Blood glucose increased [Unknown]
  - Bedridden [Unknown]
  - Asthenia [Unknown]
  - Dyspnoea [Recovering/Resolving]
  - Vision blurred [Unknown]
  - Heart rate increased [Recovered/Resolved]
  - Rash [Unknown]
  - Abasia [Unknown]
  - Oropharyngeal pain [Unknown]

NARRATIVE: CASE EVENT DATE: 20111031
